FAERS Safety Report 17045819 (Version 2)
Quarter: 2022Q1

REPORT INFORMATION
  Report Type: Spontaneous
  Country: US (occurrence: US)
  Receive Date: 20191118
  Receipt Date: 20220114
  Transmission Date: 20220423
  Serious: Yes (Other)
  Sender: FDA-Public Use
  Company Number: US-SUN PHARMACEUTICAL INDUSTRIES LTD-2019R1-227701

PATIENT
  Age: 14 Year
  Sex: Female

DRUGS (6)
  1. DEXMEDETOMIDINE [Suspect]
     Active Substance: DEXMEDETOMIDINE
     Indication: Procedural vomiting
     Dosage: AT VARYING DOSES (RANGE OF 0.1-0.38 MCG/KG/HOUR) FOR NEARLY THREE YEARS
     Route: 058
  2. DEXMEDETOMIDINE [Suspect]
     Active Substance: DEXMEDETOMIDINE
     Indication: Sedative therapy
     Dosage: UNK (0.3 MCG/KG/HOUR)
     Route: 058
     Dates: start: 201207
  3. DEXMEDETOMIDINE [Suspect]
     Active Substance: DEXMEDETOMIDINE
     Dosage: UNK ((0.5 MCG/KG/HOUR)
     Route: 058
     Dates: start: 201207
  4. DEXMEDETOMIDINE [Suspect]
     Active Substance: DEXMEDETOMIDINE
     Dosage: UNK (0.3 MCG/KG/HOUR)
     Route: 058
     Dates: start: 201207
  5. LORAZEPAM [Concomitant]
     Active Substance: LORAZEPAM
     Indication: Product used for unknown indication
     Dosage: UNK (1.5 MG)
     Route: 042
  6. MILRINONE [Concomitant]
     Active Substance: MILRINONE
     Indication: Cardiac output decreased
     Dosage: UNK
     Route: 065
     Dates: start: 2013

REACTIONS (1)
  - Tachyphylaxis [Unknown]
